FAERS Safety Report 13094228 (Version 1)
Quarter: 2017Q1

REPORT INFORMATION
  Report Type: Report from Study
  Country: RU (occurrence: RU)
  Receive Date: 20170106
  Receipt Date: 20170106
  Transmission Date: 20170428
  Serious: Yes (Hospitalization, Disabling)
  Sender: FDA-Public Use
  Company Number: RU-CELGENEUS-RUS-2016116428

PATIENT
  Age: 75 Year
  Sex: Female

DRUGS (7)
  1. KETOROLAC [Concomitant]
     Active Substance: KETOROLAC\KETOROLAC TROMETHAMINE
     Indication: BACK PAIN
     Route: 065
  2. RELAXAN [Concomitant]
     Indication: INSOMNIA
     Route: 065
  3. CEFTRIAXONUM [Concomitant]
     Indication: PNEUMONIA
     Route: 065
     Dates: start: 20161125
  4. BISOPROLOL [Concomitant]
     Active Substance: BISOPROLOL
     Indication: HYPERTENSION
     Route: 065
  5. GRANOCYT [Concomitant]
     Indication: LEUKOPENIA
     Route: 065
     Dates: start: 20161119, end: 20161119
  6. ABRAXANE [Suspect]
     Active Substance: PACLITAXEL
     Indication: BREAST CANCER
     Dosage: 100 MG/M2
     Route: 041
     Dates: start: 20161109, end: 20161221
  7. MPDL3280A (ATEZOLIZUMAB) [Suspect]
     Active Substance: ATEZOLIZUMAB
     Indication: TRIPLE NEGATIVE BREAST CANCER
     Route: 041
     Dates: start: 20161109, end: 20161109

REACTIONS (5)
  - Pneumonia [Recovered/Resolved]
  - Peripheral motor neuropathy [Not Recovered/Not Resolved]
  - Diarrhoea [Recovering/Resolving]
  - Myopathy [Not Recovered/Not Resolved]
  - Pneumonia [Not Recovered/Not Resolved]

NARRATIVE: CASE EVENT DATE: 20161118
